FAERS Safety Report 7381185-4 (Version None)
Quarter: 2011Q1

REPORT INFORMATION
  Report Type: 
  Country: None (occurrence: None)
  Receive Date: 20110301
  Receipt Date: 20100715
  Transmission Date: 20110831
  Serious: Yes (Other)
  Sender: FDA-Public Use
  Company Number: ALA_00611_2010

PATIENT
  Sex: Female

DRUGS (2)
  1. REGLAN [Suspect]
     Indication: IMPAIRED GASTRIC EMPTYING
     Dosage: (DF)
     Dates: end: 20090101
  2. CORTEF /00028601/ [Concomitant]

REACTIONS (4)
  - PROTRUSION TONGUE [None]
  - TARDIVE DYSKINESIA [None]
  - DYSKINESIA [None]
  - MUSCLE TWITCHING [None]
